FAERS Safety Report 19194069 (Version 1)
Quarter: 2021Q2

REPORT INFORMATION
  Report Type: Spontaneous
  Country: US (occurrence: US)
  Receive Date: 20210428
  Receipt Date: 20210428
  Transmission Date: 20210717
  Serious: No
  Sender: FDA-Public Use
  Company Number: None

PATIENT
  Age: 60 Year
  Sex: Male

DRUGS (1)
  1. VOSEVI [Suspect]
     Active Substance: SOFOSBUVIR\VELPATASVIR\VOXILAPREVIR
     Indication: CHRONIC HEPATITIS C
     Dosage: ?          OTHER DOSE:400?100?100MG;?
     Route: 048
     Dates: start: 20210409

REACTIONS (3)
  - Joint injury [None]
  - Joint swelling [None]
  - Fall [None]

NARRATIVE: CASE EVENT DATE: 20210414
